FAERS Safety Report 9661346 (Version 2)
Quarter: 2013Q4

REPORT INFORMATION
  Report Type: Spontaneous
  Country: US (occurrence: None)
  Receive Date: 20131030
  Receipt Date: 20131104
  Transmission Date: 20140711
  Serious: Yes (Other)
  Sender: FDA-Public Use
  Company Number: AUR-APL-2013-08862

PATIENT
  Age: 14 Year
  Sex: Female

DRUGS (3)
  1. SEMISODIUM VALPROATE [Suspect]
     Indication: PETIT MAL EPILEPSY
  2. MEROPENEM (MEROPENEM) [Suspect]
     Indication: CYSTIC FIBROSIS
     Route: 042
  3. VALPROATE [Suspect]
     Indication: PETIT MAL EPILEPSY
     Route: 042

REACTIONS (4)
  - Petit mal epilepsy [None]
  - Drug interaction [None]
  - Eye movement disorder [None]
  - Unresponsive to stimuli [None]
